FAERS Safety Report 19636600 (Version 1)
Quarter: 2021Q3

REPORT INFORMATION
  Report Type: Spontaneous
  Country: US (occurrence: US)
  Receive Date: 20210730
  Receipt Date: 20210730
  Transmission Date: 20211014
  Serious: No
  Sender: FDA-Public Use
  Company Number: None

PATIENT
  Age: 64 Year
  Sex: Male
  Weight: 90 kg

DRUGS (12)
  1. FLONASE [Concomitant]
     Active Substance: FLUTICASONE PROPIONATE
  2. GARLIC. [Concomitant]
     Active Substance: GARLIC
  3. COENZYME Q10 [Concomitant]
     Active Substance: DIETARY SUPPLEMENT\UBIDECARENONE
  4. SALONPAS (CAMPHOR (SYNTHETIC)\MENTHOL\METHYL SALICYLATE) [Suspect]
     Active Substance: CAMPHOR (SYNTHETIC)\MENTHOL\METHYL SALICYLATE
     Indication: MYALGIA
     Dosage: ?          OTHER STRENGTH:EACH;QUANTITY:1 PATCH(ES);?
     Route: 062
     Dates: start: 20210729, end: 20210729
  5. HYDROCORTISONE. [Concomitant]
     Active Substance: HYDROCORTISONE
  6. EXCEDRIN [Concomitant]
     Active Substance: ACETAMINOPHEN\ASPIRIN\CAFFEINE
  7. VITAMIN C + D [Concomitant]
  8. PROBIOTICS [Concomitant]
     Active Substance: PROBIOTICS NOS
  9. THYROID [Concomitant]
     Active Substance: LEVOTHYROXINE\LIOTHYRONINE
  10. STATIN [Concomitant]
     Active Substance: UNSPECIFIED INGREDIENT
  11. FISH OIL [Concomitant]
     Active Substance: FISH OIL
  12. POTASSIUM [Concomitant]
     Active Substance: POTASSIUM

REACTIONS (4)
  - Product use complaint [None]
  - Dysgeusia [None]
  - Parosmia [None]
  - Irritability [None]

NARRATIVE: CASE EVENT DATE: 20210730
